FAERS Safety Report 7285215-X (Version None)
Quarter: 2011Q1

REPORT INFORMATION
  Report Type: 
  Country: None (occurrence: None)
  Receive Date: 20110210
  Receipt Date: 20110204
  Transmission Date: 20110831
  Serious: Yes (Other)
  Sender: FDA-Public Use
  Company Number: US-CTI_01301_2011

PATIENT
  Sex: Male

DRUGS (6)
  1. PATANASE [Concomitant]
     Dosage: DF
  2. FACTIVE [Suspect]
     Indication: BRONCHITIS
     Dosage: ONCE
     Dates: start: 20110131, end: 20110131
  3. DEXAMETHASONE [Concomitant]
     Dosage: DF
  4. FLOVENT [Concomitant]
     Dosage: DF
  5. FLONASE [Concomitant]
     Dosage: DF
  6. HYCODAN [Concomitant]
     Dosage: DF

REACTIONS (3)
  - CHOKING SENSATION [None]
  - ABNORMAL BEHAVIOUR [None]
  - HALLUCINATION [None]
